FAERS Safety Report 10812421 (Version 1)
Quarter: 2015Q1

REPORT INFORMATION
  Report Type: Spontaneous
  Country: US (occurrence: None)
  Receive Date: 20150213
  Receipt Date: 20150213
  Transmission Date: 20150721
  Serious: Yes (Hospitalization)
  Sender: FDA-Public Use
  Company Number: None

PATIENT
  Age: 56 Year
  Sex: Female
  Weight: 114 kg

DRUGS (6)
  1. FOSAPREPITANT [Suspect]
     Active Substance: FOSAPREPITANT
  2. LORAZEPAM. [Concomitant]
     Active Substance: LORAZEPAM
  3. BENAZEPRIL-HCTZ [Concomitant]
  4. GRANISETRON [Suspect]
     Active Substance: GRANISETRON
  5. NORCO [Concomitant]
     Active Substance: ACETAMINOPHEN\HYDROCODONE BITARTRATE
  6. FENOFIBRATE. [Concomitant]
     Active Substance: FENOFIBRATE

REACTIONS (3)
  - Diverticulitis [None]
  - Diverticular perforation [None]
  - Pelvic abscess [None]

NARRATIVE: CASE EVENT DATE: 20150103
